FAERS Safety Report 5098890-5 (Version None)
Quarter: 2006Q3

REPORT INFORMATION
  Report Type: 
  Country: None (occurrence: None)
  Receive Date: 20060907
  Receipt Date: 20060830
  Transmission Date: 20061208
  Serious: Yes (Death, Other)
  Sender: FDA-Public Use
  Company Number: PHBS2006JP13154

PATIENT
  Age: 38 Year
  Sex: Male

DRUGS (11)
  1. GLEEVEC [Suspect]
     Indication: ACUTE LYMPHOCYTIC LEUKAEMIA
     Dosage: 400 MG/DAY
     Route: 048
     Dates: start: 20031127, end: 20031224
  2. GLEEVEC [Suspect]
     Dosage: 600 MG/DAY
     Route: 048
     Dates: start: 20031225, end: 20031231
  3. TIMOLOL MALEATE [Concomitant]
     Dates: start: 20031126
  4. DORZOLAMIDE [Concomitant]
     Dates: start: 20031126
  5. ACETAZOLAMIDE [Concomitant]
     Route: 048
     Dates: start: 20031126
  6. BUNAZOSIN [Concomitant]
     Dates: start: 20031204
  7. METHOTREXATE [Suspect]
     Dates: start: 20031208
  8. CYTARABINE [Concomitant]
     Dates: start: 20031208
  9. PREDNISOLONE [Concomitant]
     Dates: start: 20031208
  10. BETAMETHASONE [Concomitant]
     Dates: start: 20031119
  11. LEVOFLOXACIN [Concomitant]
     Dates: start: 20031119

REACTIONS (11)
  - CORECTOPIA [None]
  - FLAT ANTERIOR CHAMBER OF EYE [None]
  - INTRAOCULAR PRESSURE INCREASED [None]
  - IRIS DISORDER [None]
  - LEUKAEMIC INFILTRATION BRAIN [None]
  - MALIGNANT NEOPLASM PROGRESSION [None]
  - PLATELET COUNT DECREASED [None]
  - PNEUMONIA FUNGAL [None]
  - VISION BLURRED [None]
  - VISUAL ACUITY REDUCED [None]
  - VITREOUS HAEMORRHAGE [None]
